FAERS Safety Report 18971065 (Version 2)
Quarter: 2021Q1

REPORT INFORMATION
  Report Type: Report from Study
  Country: US (occurrence: US)
  Receive Date: 20210304
  Receipt Date: 20210312
  Transmission Date: 20210420
  Serious: Yes (Hospitalization)
  Sender: FDA-Public Use
  Company Number: US-SEATTLE GENETICS-2020SGN03323

PATIENT
  Sex: Female

DRUGS (1)
  1. TUCATINIB [Suspect]
     Active Substance: TUCATINIB
     Indication: PRODUCT USED FOR UNKNOWN INDICATION
     Dosage: UNK
     Route: 048
     Dates: start: 202006

REACTIONS (8)
  - Taste disorder [Unknown]
  - Hospice care [Unknown]
  - Malaise [Unknown]
  - Drug ineffective [Unknown]
  - Metastases to central nervous system [Unknown]
  - Eating disorder [Unknown]
  - Asthenia [Unknown]
  - Dysstasia [Unknown]
